FAERS Safety Report 5659954-8 (Version None)
Quarter: 2008Q1

REPORT INFORMATION
  Report Type: 
  Country: None (occurrence: None)
  Receive Date: 20080311
  Receipt Date: 20080221
  Transmission Date: 20080703
  Serious: Yes (Life-Threatening, Hospitalization)
  Sender: FDA-Public Use
  Company Number: GB-ROCHE-549126

PATIENT
  Age: 68 Year
  Sex: Female
  Weight: 58 kg

DRUGS (3)
  1. CAPECITABINE [Suspect]
     Indication: BREAST CANCER
     Dosage: RECEIVED 4 CYCLES. LAST CHEMO CYCLE PRIOR TO SAE WAS 24 JANUARY 2008. PATIENT COMPLETED LAST CYCLE +
     Route: 048
     Dates: start: 20070927, end: 20080124
  2. EPIRUBICIN [Suspect]
     Indication: BREAST CANCER
     Dosage: RECEIVED 4 CYCLES.
     Route: 065
     Dates: start: 20070927
  3. NEULASTA [Suspect]
     Indication: BREAST CANCER
     Dosage: RECEIVED 4 CYCLES.
     Route: 065
     Dates: start: 20070927

REACTIONS (4)
  - DIARRHOEA [None]
  - INTESTINAL OBSTRUCTION [None]
  - NAUSEA [None]
  - VOMITING [None]
